FAERS Safety Report 21765428 (Version 2)
Quarter: 2023Q1

REPORT INFORMATION
  Report Type: Report from Study
  Country: EG (occurrence: EG)
  Receive Date: 20221222
  Receipt Date: 20230106
  Transmission Date: 20230418
  Serious: Yes (Other)
  Sender: FDA-Public Use
  Company Number: EG-002147023-NVSC2022EG295581

PATIENT
  Age: 50 Year
  Sex: Female

DRUGS (14)
  1. COSENTYX [Suspect]
     Active Substance: SECUKINUMAB
     Indication: Ankylosing spondylitis
     Dosage: 150 MG, QMO
     Route: 058
     Dates: start: 20221024
  2. CALCIUM CARBONATE\ERGOCALCIFEROL\RETINOL [Concomitant]
     Active Substance: CALCIUM CARBONATE\ERGOCALCIFEROL\RETINOL
     Indication: Mineral supplementation
     Dosage: 1 DOSAGE FORM, QD
     Route: 065
     Dates: start: 2021
  3. BENFOTIAMINE\CYANOCOBALAMIN\PYRIDOXINE HYDROCHLORIDE [Concomitant]
     Active Substance: BENFOTIAMINE\CYANOCOBALAMIN\PYRIDOXINE HYDROCHLORIDE
     Indication: Vitamin supplementation
     Dosage: 1 DOSAGE FORM, QD
     Route: 065
     Dates: start: 2021
  4. VITAMIN D [Concomitant]
     Active Substance: VITAMIN D NOS
     Indication: Vitamin supplementation
     Dosage: UNK
     Route: 065
     Dates: start: 2021
  5. TRINA [Concomitant]
     Indication: Bone pain
     Dosage: UNK, TID
     Route: 065
     Dates: start: 20221205
  6. ENHANCIN [Concomitant]
     Indication: Antibiotic therapy
     Dosage: UNK, QD
     Route: 065
     Dates: start: 20221205
  7. PIROXICAM BETADEX [Concomitant]
     Active Substance: PIROXICAM BETADEX
     Indication: Arthritis
     Dosage: UNK, QD
     Route: 065
     Dates: start: 20221205
  8. PIROXICAM BETADEX [Concomitant]
     Active Substance: PIROXICAM BETADEX
     Indication: Osteoporosis
  9. LEVOTHYROXINE [Concomitant]
     Active Substance: LEVOTHYROXINE
     Indication: Thyroid disorder
     Dosage: 1.5 DOSAGE FORM, QD
     Route: 065
     Dates: start: 2016
  10. GINKGO [Concomitant]
     Active Substance: GINKGO
     Indication: Hyperhidrosis
     Dosage: UNK UNK, QD
     Route: 065
     Dates: start: 20211109
  11. GINKGO [Concomitant]
     Active Substance: GINKGO
     Indication: Post procedural fever
  12. OMEPRAZOLE [Concomitant]
     Active Substance: OMEPRAZOLE
     Indication: Gastrooesophageal reflux disease
     Dosage: 1 DOSAGE FORM (BEFORE BREAKFAST) (FOR 2 MONTHS)
     Route: 065
     Dates: start: 20221205
  13. BORAGO OFFICINALIS OIL [Concomitant]
     Indication: Post procedural fever
     Dosage: UNK, QD
     Route: 065
     Dates: start: 20211109
  14. BORAGO OFFICINALIS OIL [Concomitant]
     Indication: Hyperhidrosis

REACTIONS (4)
  - Back pain [Not Recovered/Not Resolved]
  - Neck pain [Not Recovered/Not Resolved]
  - Pain in extremity [Not Recovered/Not Resolved]
  - Exostosis [Not Recovered/Not Resolved]

NARRATIVE: CASE EVENT DATE: 20221001
